FAERS Safety Report 6559229-9 (Version None)
Quarter: 2010Q1

REPORT INFORMATION
  Report Type: 
  Country: None (occurrence: None)
  Receive Date: 20100129
  Receipt Date: 20100118
  Transmission Date: 20100710
  Serious: Yes (Other)
  Sender: FDA-Public Use
  Company Number: CA-GENENTECH-297355

PATIENT
  Sex: Male
  Weight: 84.5 kg

DRUGS (9)
  1. XOLAIR [Suspect]
     Indication: ASTHMA
     Dosage: 225 MG, Q2W
     Route: 058
     Dates: start: 20090805
  2. XOLAIR [Suspect]
     Dosage: 225 MG, Q2W
     Route: 058
     Dates: start: 20091013
  3. XOLAIR [Suspect]
     Dosage: 375 MG, Q2W
     Route: 058
     Dates: start: 20100118
  4. SYMBICORT [Concomitant]
     Indication: DRUG USE FOR UNKNOWN INDICATION
  5. ALVESCO [Concomitant]
     Indication: DRUG USE FOR UNKNOWN INDICATION
  6. SPIRIVA [Concomitant]
     Indication: DRUG USE FOR UNKNOWN INDICATION
  7. SINGULAIR [Concomitant]
     Indication: DRUG USE FOR UNKNOWN INDICATION
  8. VENTOLIN [Concomitant]
     Indication: DRUG USE FOR UNKNOWN INDICATION
  9. UNIPHYL [Concomitant]
     Indication: DRUG USE FOR UNKNOWN INDICATION

REACTIONS (4)
  - NASOPHARYNGITIS [None]
  - PNEUMONIA [None]
  - SINUSITIS [None]
  - WHEEZING [None]
